FAERS Safety Report 7483105-0 (Version None)
Quarter: 2011Q2

REPORT INFORMATION
  Report Type: 
  Country: None (occurrence: None)
  Receive Date: 20110516
  Receipt Date: 20100426
  Transmission Date: 20111010
  Serious: Yes (Other)
  Sender: FDA-Public Use
  Company Number: DE-GENENTECH-318599

PATIENT
  Age: 78 Year
  Sex: Female

DRUGS (3)
  1. HEART MEDICATION NOS [Suspect]
     Indication: PRODUCT USED FOR UNKNOWN INDICATION
  2. LUCENTIS [Suspect]
     Indication: MACULAR DEGENERATION
     Dosage: UNK
     Route: 031
     Dates: start: 20090626
  3. THYROID DRUG NOS [Suspect]
     Indication: PRODUCT USED FOR UNKNOWN INDICATION

REACTIONS (9)
  - EYE HAEMORRHAGE [None]
  - MACULAR DEGENERATION [None]
  - WEIGHT DECREASED [None]
  - COUGH [None]
  - CATARACT [None]
  - DRUG INTERACTION [None]
  - FATIGUE [None]
  - HEADACHE [None]
  - EYE PRURITUS [None]
